FAERS Safety Report 8051408-7 (Version None)
Quarter: 2012Q1

REPORT INFORMATION
  Report Type: 
  Country: None (occurrence: None)
  Receive Date: 20120117
  Receipt Date: 20101208
  Transmission Date: 20120608
  Serious: Yes (Other)
  Sender: FDA-Public Use
  Company Number: US-ROCHE-1029393

PATIENT
  Sex: Female

DRUGS (2)
  1. AVASTIN [Suspect]
     Indication: BREAST CANCER METASTATIC
  2. DOCETAXEL [Suspect]
     Indication: BREAST CANCER METASTATIC
     Route: 042

REACTIONS (14)
  - BONE PAIN [None]
  - FEBRILE NEUTROPENIA [None]
  - MUCOSAL INFLAMMATION [None]
  - NAIL DISORDER [None]
  - HYPERTENSION [None]
  - FATIGUE [None]
  - RENAL FAILURE ACUTE [None]
  - CONSTIPATION [None]
  - ARTHRALGIA [None]
  - RECTAL ABSCESS [None]
  - DEHYDRATION [None]
  - DIARRHOEA [None]
  - ATAXIA [None]
  - VOMITING [None]
